FAERS Safety Report 14977139 (Version 2)
Quarter: 2018Q3

REPORT INFORMATION
  Report Type: Report from Study
  Country: None (occurrence: ES)
  Receive Date: 20180606
  Receipt Date: 20180806
  Transmission Date: 20181010
  Serious: Yes (Hospitalization, Disabling, Other)
  Sender: FDA-Public Use
  Company Number: ES-ABBVIE-18K-144-2378175-00

PATIENT
  Age: 78 Year
  Sex: Female

DRUGS (2)
  1. DUODOPA [Suspect]
     Active Substance: CARBIDOPA\LEVODOPA
     Indication: PARKINSON^S DISEASE
     Route: 050
     Dates: start: 20160121
  2. DUODOPA [Suspect]
     Active Substance: CARBIDOPA\LEVODOPA
     Route: 050
     Dates: start: 20180731

REACTIONS (11)
  - Abdominal pain [Recovered/Resolved]
  - Stoma site infection [Not Recovered/Not Resolved]
  - Vomiting [Recovered/Resolved]
  - Oedema mucosal [Not Recovered/Not Resolved]
  - Abdominal infection [Not Recovered/Not Resolved]
  - Fall [Recovered/Resolved]
  - Faeces discoloured [Recovered/Resolved]
  - Stoma site hypergranulation [Recovering/Resolving]
  - Disorientation [Unknown]
  - Stoma site haemorrhage [Not Recovered/Not Resolved]
  - Rotator cuff syndrome [Unknown]

NARRATIVE: CASE EVENT DATE: 2018
